FAERS Safety Report 21655974 (Version 1)
Quarter: 2022Q4

REPORT INFORMATION
  Report Type: Spontaneous
  Country: NL (occurrence: NL)
  Receive Date: 20221129
  Receipt Date: 20221129
  Transmission Date: 20230113
  Serious: Yes (Hospitalization)
  Sender: FDA-Public Use
  Company Number: None

PATIENT
  Sex: Male
  Weight: 75 kg

DRUGS (1)
  1. VENLAFAXINE [Suspect]
     Active Substance: VENLAFAXINE HYDROCHLORIDE
     Indication: Depression
     Dosage: 1 DF (CONTROLLED-RELEASE CAPSULE, 37.5 MG)
     Route: 065
     Dates: start: 20070101, end: 20220531

REACTIONS (2)
  - Pancreatitis [Recovering/Resolving]
  - Product substitution issue [Unknown]
